FAERS Safety Report 4277070-7 (Version None)
Quarter: 2004Q1

REPORT INFORMATION
  Report Type: 
  Country: None (occurrence: None)
  Receive Date: 20040120
  Receipt Date: 20040115
  Transmission Date: 20041129
  Serious: Yes (Death, Hospitalization)
  Sender: FDA-Public Use
  Company Number: THQ2003A01366

PATIENT
  Sex: Male

DRUGS (1)
  1. LANSOPRAZOLE [Suspect]

REACTIONS (4)
  - HISTIOCYTOSIS HAEMATOPHAGIC [None]
  - RED BLOOD CELL ABNORMALITY [None]
  - SEPSIS [None]
  - THROMBOCYTOPENIA [None]
